FAERS Safety Report 5645065-4 (Version None)
Quarter: 2008Q1

REPORT INFORMATION
  Report Type: 
  Country: None (occurrence: None)
  Receive Date: 20080229
  Receipt Date: 20080220
  Transmission Date: 20080703
  Serious: Yes (Hospitalization)
  Sender: FDA-Public Use
  Company Number: JP-JNJFOC-20080201113

PATIENT
  Sex: Female
  Weight: 38 kg

DRUGS (27)
  1. REMICADE [Suspect]
     Route: 042
  2. REMICADE [Suspect]
     Dosage: 10 DOSES ON UNKNOWN DATES
     Route: 042
  3. REMICADE [Suspect]
     Indication: RHEUMATOID ARTHRITIS
     Route: 042
  4. RHEUMATREX [Concomitant]
     Indication: RHEUMATOID ARTHRITIS
     Route: 048
  5. AZULFIDINE EN-TABS [Concomitant]
     Route: 048
  6. AZULFIDINE EN-TABS [Concomitant]
     Indication: RHEUMATOID ARTHRITIS
     Route: 048
  7. RIMATIL [Concomitant]
     Route: 048
  8. RIMATIL [Concomitant]
     Indication: RHEUMATOID ARTHRITIS
     Route: 048
  9. THIOLA [Concomitant]
     Route: 048
  10. THIOLA [Concomitant]
     Route: 048
  11. ADRENAL HORMONE PREPARATION [Concomitant]
  12. ANTI-TUBERCULOUS AGENTS [Concomitant]
  13. BONALON [Concomitant]
     Indication: OSTEOPOROSIS
     Route: 048
  14. TAKEPRON [Concomitant]
     Route: 048
  15. TAKEPRON [Concomitant]
     Indication: REFLUX OESOPHAGITIS
     Route: 048
  16. ULGUT [Concomitant]
     Route: 048
  17. ULGUT [Concomitant]
     Indication: GASTRITIS
     Route: 048
  18. LOXONIN [Concomitant]
     Route: 048
  19. LOXONIN [Concomitant]
     Indication: OSTEOARTHRITIS
     Route: 048
  20. URSO 250 [Concomitant]
     Route: 048
  21. URSO 250 [Concomitant]
     Indication: CHRONIC HEPATITIS
     Route: 048
  22. PREDONINE [Concomitant]
     Route: 048
  23. PREDONINE [Concomitant]
     Indication: RHEUMATOID ARTHRITIS
     Route: 048
  24. ALFAROL [Concomitant]
     Route: 048
  25. ALFAROL [Concomitant]
     Indication: OSTEOPOROSIS
     Route: 048
  26. CYANOCOBALAMIN [Concomitant]
     Route: 048
  27. CYANOCOBALAMIN [Concomitant]
     Indication: NEUROPATHY PERIPHERAL
     Route: 048

REACTIONS (1)
  - PULMONARY TUBERCULOSIS [None]
